FAERS Safety Report 7371353-X (Version None)
Quarter: 2011Q1

REPORT INFORMATION
  Report Type: 
  Country: None (occurrence: None)
  Receive Date: 20110322
  Receipt Date: 20110322
  Transmission Date: 20110831
  Serious: Yes (Other)
  Sender: FDA-Public Use
  Company Number: None

PATIENT
  Sex: Male
  Weight: 77.1115 kg

DRUGS (2)
  1. LEVAQUIN [Suspect]
     Indication: PNEUMONIA
     Dates: start: 20110225, end: 20110304
  2. LEVAQUIN [Suspect]
     Indication: PNEUMONIA
     Dates: start: 20110222, end: 20110222

REACTIONS (6)
  - JOINT INJURY [None]
  - ARTHROPATHY [None]
  - MUSCLE DISORDER [None]
  - TENDON INJURY [None]
  - TENDON DISORDER [None]
  - MUSCLE INJURY [None]
